FAERS Safety Report 23938781 (Version 1)
Quarter: 2024Q2

REPORT INFORMATION
  Report Type: Spontaneous
  Country: CN (occurrence: CN)
  Receive Date: 20240604
  Receipt Date: 20240604
  Transmission Date: 20240715
  Serious: Yes (Other)
  Sender: FDA-Public Use
  Company Number: CN-WOODWARD-2024-CN-000195

PATIENT
  Age: 33 Year
  Sex: Female

DRUGS (4)
  1. RABEPRAZOLE SODIUM [Suspect]
     Active Substance: RABEPRAZOLE SODIUM
     Indication: Helicobacter infection
     Dosage: 4.0 DOSAGE FORM (2 DOSAGE FORM, 1 IN 12 HOUR)
     Route: 048
     Dates: start: 20240411, end: 20240419
  2. CLARITHROMYCIN [Suspect]
     Active Substance: CLARITHROMYCIN
     Dosage: 8.0 DOSAGE FORM (4 DOSAGE FORM, 1 IN 12 HOUR)
     Route: 048
     Dates: start: 20240411, end: 20240419
  3. BISMUTH SUBCITRATE [Suspect]
     Active Substance: BISMUTH SUBCITRATE
     Dosage: 8.0 DOSAGE FORM (4 DOSAGE FORM, 1 IN 12 HOUR)
     Route: 048
     Dates: start: 20240411, end: 20240419
  4. AMOXICILLIN [Suspect]
     Active Substance: AMOXICILLIN
     Dosage: 16.0 DOSAGE FORM (8 DOSAGE FORM, 1 IN 12 HOUR)
     Route: 048
     Dates: start: 20240411, end: 20240419

REACTIONS (3)
  - Erythema multiforme [Recovering/Resolving]
  - Pruritus [Recovering/Resolving]
  - Urticaria [Recovering/Resolving]

NARRATIVE: CASE EVENT DATE: 20240419
